FAERS Safety Report 6255766-5 (Version None)
Quarter: 2009Q3

REPORT INFORMATION
  Report Type: 
  Country: None (occurrence: None)
  Receive Date: 20090701
  Receipt Date: 20090624
  Transmission Date: 20100115
  Serious: Yes (Other)
  Sender: FDA-Public Use
  Company Number: THQ2009A03175

PATIENT
  Age: 53 Year
  Sex: Female

DRUGS (3)
  1. ACTOS [Suspect]
     Indication: DIABETES MELLITUS
     Dosage: 30 MG (30 MG, 1 IN 1 D), PER ORAL
     Route: 048
     Dates: start: 20090501, end: 20090608
  2. THYROHORMONE (LEVOTHYROXINE SODIUM) [Concomitant]
  3. PAROXETINE HYDROCHLORIDE [Concomitant]

REACTIONS (1)
  - ANOSMIA [None]
